FAERS Safety Report 24376993 (Version 3)
Quarter: 2024Q4

REPORT INFORMATION
  Report Type: Spontaneous
  Country: CN (occurrence: CN)
  Receive Date: 20240930
  Receipt Date: 20241003
  Transmission Date: 20250114
  Serious: Yes (Hospitalization, Other)
  Sender: ABBVIE
  Company Number: CN-ABBVIE-5936161

PATIENT
  Sex: Male
  Weight: 62 kg

DRUGS (1)
  1. UPADACITINIB [Suspect]
     Active Substance: UPADACITINIB
     Indication: Product used for unknown indication
     Dosage: 15 MILLIGRAM
     Route: 048
     Dates: start: 202405, end: 202405

REACTIONS (29)
  - T-cell lymphoma [Unknown]
  - Penile ulceration [Recovering/Resolving]
  - Anal ulcer [Recovering/Resolving]
  - Conjunctival ulcer [Recovering/Resolving]
  - Pruritus [Unknown]
  - Skin erosion [Unknown]
  - Scab [Unknown]
  - Skin ulcer [Unknown]
  - Eyelid margin crusting [Unknown]
  - Scratch [Unknown]
  - Pancytopenia [Unknown]
  - Lymphadenopathy [Unknown]
  - Pleural effusion [Unknown]
  - Angioimmunoblastic T-cell lymphoma [Unknown]
  - Malignant pleural effusion [Unknown]
  - Malignant ascites [Unknown]
  - Pseudomonal bacteraemia [Unknown]
  - Staphylococcal bacteraemia [Unknown]
  - Bacteroides bacteraemia [Unknown]
  - Herpes simplex [Unknown]
  - Skin candida [Unknown]
  - Staphylococcal skin infection [Unknown]
  - Pneumonia klebsiella [Unknown]
  - Pneumonia staphylococcal [Unknown]
  - Pneumonia acinetobacter [Unknown]
  - Candida pneumonia [Unknown]
  - Coagulopathy [Unknown]
  - Hypoproteinaemia [Unknown]
  - Lymphoproliferative disorder [Unknown]

NARRATIVE: CASE EVENT DATE: 20240101
